FAERS Safety Report 17579651 (Version 1)
Quarter: 2020Q1

REPORT INFORMATION
  Report Type: Spontaneous
  Country: US (occurrence: US)
  Receive Date: 20200325
  Receipt Date: 20200325
  Transmission Date: 20200409
  Serious: No
  Sender: FDA-Public Use
  Company Number: US-BAYER-2020-049925

PATIENT
  Age: 44 Year
  Sex: Female

DRUGS (1)
  1. MIRALAX [Suspect]
     Active Substance: POLYETHYLENE GLYCOL 3350
     Indication: NUTRITIONAL SUPPLEMENTATION
     Dosage: 17 G, QD
     Route: 048
     Dates: start: 2010

REACTIONS (3)
  - Incorrect product administration duration [Unknown]
  - Product solubility abnormal [None]
  - Product contamination physical [None]

NARRATIVE: CASE EVENT DATE: 2010
